FAERS Safety Report 10085927 (Version 1)
Quarter: 2014Q2

REPORT INFORMATION
  Report Type: Spontaneous
  Country: US (occurrence: US)
  Receive Date: 20140418
  Receipt Date: 20140418
  Transmission Date: 20141212
  Serious: No
  Sender: FDA-Public Use
  Company Number: US-BAYER-2014-052720

PATIENT
  Age: 22 Year
  Sex: Female

DRUGS (1)
  1. ALEVE CAPLET [Suspect]
     Indication: DYSMENORRHOEA
     Dosage: 1 DF, PRN
     Route: 048

REACTIONS (2)
  - Drug ineffective [None]
  - Extra dose administered [None]
